FAERS Safety Report 25130518 (Version 5)
Quarter: 2025Q2

REPORT INFORMATION
  Report Type: Spontaneous
  Country: US (occurrence: US)
  Receive Date: 20250327
  Receipt Date: 20250606
  Transmission Date: 20250716
  Serious: Yes (Hospitalization, Other)
  Sender: TAKEDA
  Company Number: US-TAKEDA-2025TUS030201

PATIENT
  Age: 41 Year
  Sex: Female
  Weight: 113 kg

DRUGS (6)
  1. ENTYVIO [Suspect]
     Active Substance: VEDOLIZUMAB
     Indication: Crohn^s disease
  2. ENTYVIO [Suspect]
     Active Substance: VEDOLIZUMAB
     Dosage: 300 MILLIGRAM, Q7WEEKS
  3. EMGALITY [Concomitant]
     Active Substance: GALCANEZUMAB-GNLM
     Indication: Headache
  4. DULOXETINE [Concomitant]
     Active Substance: DULOXETINE
     Indication: Anxiety
  5. LAMOTRIGINE [Concomitant]
     Active Substance: LAMOTRIGINE
     Indication: Anxiety
  6. VITAMIN D NOS [Concomitant]
     Active Substance: CHOLECALCIFEROL\ERGOCALCIFEROL

REACTIONS (31)
  - Swelling [Unknown]
  - Gingival swelling [Unknown]
  - Tongue erythema [Unknown]
  - Swollen tongue [Recovered/Resolved]
  - Gingival bleeding [Unknown]
  - Blepharospasm [Unknown]
  - Influenza like illness [Unknown]
  - Malaise [Recovered/Resolved]
  - Lymphadenopathy [Recovering/Resolving]
  - Ear pain [Recovered/Resolved]
  - Pharyngitis [Recovered/Resolved]
  - Arthralgia [Recovered/Resolved]
  - Pyrexia [Unknown]
  - Seizure [Unknown]
  - Liquid product physical issue [Unknown]
  - Maternal exposure during breast feeding [Unknown]
  - Viral infection [Unknown]
  - Pain [Unknown]
  - Diarrhoea [Unknown]
  - Mouth ulceration [Unknown]
  - Intervertebral disc degeneration [Unknown]
  - Anxiety [Unknown]
  - Faeces soft [Unknown]
  - Rash macular [Unknown]
  - Weight increased [Unknown]
  - Abdominal pain [Unknown]
  - Urinary tract infection [Unknown]
  - Vomiting [Unknown]
  - Drug hypersensitivity [Unknown]
  - Nausea [Unknown]
  - Cough [Unknown]

NARRATIVE: CASE EVENT DATE: 20250219
